FAERS Safety Report 8736347 (Version 4)
Quarter: 2013Q4

REPORT INFORMATION
  Report Type: Spontaneous
  Country: US (occurrence: US)
  Receive Date: 20120822
  Receipt Date: 20131227
  Transmission Date: 20140711
  Serious: Yes (Other)
  Sender: FDA-Public Use
  Company Number: US-PFIZER INC-2012204281

PATIENT
  Age: 62 Year
  Sex: Male
  Weight: 47.62 kg

DRUGS (4)
  1. CELEBREX [Suspect]
     Indication: ARTHRITIS
     Dosage: 100 MG, 2X/DAY
     Route: 048
     Dates: start: 2007, end: 20120412
  2. CELEBREX [Suspect]
     Dosage: 100 MG, UNK
     Route: 048
  3. CELEBREX [Suspect]
     Dosage: 100 MG, 2X/DAY
  4. DYAZIDE [Concomitant]
     Dosage: UNK

REACTIONS (12)
  - Product quality issue [Unknown]
  - Hypertension [Unknown]
  - Balance disorder [Unknown]
  - Fall [Unknown]
  - Hypersensitivity [Unknown]
  - Malaise [Unknown]
  - Swelling face [Unknown]
  - Dizziness [Unknown]
  - Withdrawal syndrome [Unknown]
  - Heart rate increased [Unknown]
  - Nausea [Unknown]
  - Product quality issue [Unknown]
